FAERS Safety Report 5517825-1 (Version None)
Quarter: 2007Q4

REPORT INFORMATION
  Report Type: 
  Country: None (occurrence: None)
  Receive Date: 20071113
  Receipt Date: 20071101
  Transmission Date: 20080405
  Serious: Yes (Life-Threatening, Hospitalization)
  Sender: FDA-Public Use
  Company Number: CLOF-10738

PATIENT
  Age: 14 Year
  Sex: Female
  Weight: 57 kg

DRUGS (30)
  1. CLOFARABINE. MFR: GENZYME [Suspect]
     Indication: ACUTE LYMPHOCYTIC LEUKAEMIA
     Dosage: 63 MG QD IV
     Route: 042
     Dates: start: 20071024, end: 20071028
  2. ETOPOSIDE [Suspect]
     Indication: ACUTE LYMPHOCYTIC LEUKAEMIA
     Dosage: 155 MG QD IV
     Route: 042
     Dates: start: 20071024, end: 20071028
  3. CYCLOPHOSPHAMIDE [Suspect]
     Indication: ACUTE LYMPHOCYTIC LEUKAEMIA
     Dosage: 685 MG QD IV
     Route: 042
     Dates: start: 20071024, end: 20071028
  4. ACETAMINOPHEN [Concomitant]
  5. ACYCLOVIR [Concomitant]
  6. ALLOPURINOL [Concomitant]
  7. ALUMINUM HYDROXIDE GEL [Concomitant]
  8. BISACODYL [Concomitant]
  9. DIPHENHYDRAMINE HCL [Concomitant]
  10. FLUCONAZOLE [Concomitant]
  11. HYDROCORTISONE [Concomitant]
  12. HYDROMORPHONE HCL [Concomitant]
  13. HYDROXYZINE [Concomitant]
  14. FUROSEMIDE [Concomitant]
  15. LORAZEPAM [Concomitant]
  16. MAGNESIUM SULFATE [Concomitant]
  17. MIRTAZAPINE [Concomitant]
  18. ONDANSETRON [Concomitant]
  19. POTASSIUM CHLORIDE [Concomitant]
  20. RANITIDINE HCL [Concomitant]
  21. SODIUM BICARBONATE [Concomitant]
  22. SUCRALFATE [Concomitant]
  23. BACTRIM [Concomitant]
  24. URSODIOL [Concomitant]
  25. VANCOMYCIN [Concomitant]
  26. MICAFUNGIN [Concomitant]
  27. ZOSYN [Concomitant]
  28. PHYTONADIONE [Concomitant]
  29. NEUPOGEN [Concomitant]
  30. PANTOPRAZOLE SODIUM [Concomitant]

REACTIONS (40)
  - ABDOMINAL DISCOMFORT [None]
  - ABDOMINAL PAIN [None]
  - ALOPECIA [None]
  - ASCITES [None]
  - BACK PAIN [None]
  - BLOOD MAGNESIUM DECREASED [None]
  - CAECITIS [None]
  - CANDIDIASIS [None]
  - CAPILLARY LEAK SYNDROME [None]
  - CATHETER SITE PAIN [None]
  - CLOSTRIDIAL INFECTION [None]
  - CONFUSIONAL STATE [None]
  - CONTINUOUS HAEMODIAFILTRATION [None]
  - CORYNEBACTERIUM INFECTION [None]
  - CULTURE URINE POSITIVE [None]
  - FEBRILE NEUTROPENIA [None]
  - HALLUCINATION [None]
  - HEPATOMEGALY [None]
  - HYPOKALAEMIA [None]
  - HYPOTENSION [None]
  - LUNG CONSOLIDATION [None]
  - NAUSEA [None]
  - NO THERAPEUTIC RESPONSE [None]
  - OEDEMA PERIPHERAL [None]
  - OSTEOPENIA [None]
  - PANCREATITIS [None]
  - PERICARDIAL EFFUSION [None]
  - PITTING OEDEMA [None]
  - PLATELET COUNT DECREASED [None]
  - PLEURAL EFFUSION [None]
  - PRURITUS [None]
  - PULMONARY CONGESTION [None]
  - RED BLOOD CELL COUNT DECREASED [None]
  - RENAL FAILURE ACUTE [None]
  - STREPTOCOCCAL INFECTION [None]
  - TACHYCARDIA [None]
  - TUMOUR LYSIS SYNDROME [None]
  - VENOOCCLUSIVE LIVER DISEASE [None]
  - VOMITING [None]
  - WHITE BLOOD CELL COUNT DECREASED [None]
